FAERS Safety Report 6077027-X (Version None)
Quarter: 2009Q1

REPORT INFORMATION
  Report Type: 
  Country: None (occurrence: None)
  Receive Date: 20090211
  Receipt Date: 20090211
  Transmission Date: 20090719
  Serious: Yes (Other)
  Sender: FDA-Public Use
  Company Number: None

PATIENT
  Age: 78 Year
  Sex: Male

DRUGS (6)
  1. ALL NIGHT COLD + FLU RELIEF CHERRY FLAVOR SYRUP [Suspect]
     Dosage: ONCE A DAY ORALLY BEFORE BED,TWO TABLESPOONS
     Route: 048
     Dates: start: 20090131, end: 20090131
  2. PIROXICAM [Concomitant]
  3. HYDROCHLOROTHIAZIDE [Concomitant]
  4. ATENOLOL [Concomitant]
  5. LEVOTHYRODOXINE [Concomitant]
  6. PHENYTOIN [Concomitant]

REACTIONS (1)
  - THROAT IRRITATION [None]
